FAERS Safety Report 7966556-7 (Version None)
Quarter: 2011Q4

REPORT INFORMATION
  Report Type: 
  Country: None (occurrence: None)
  Receive Date: 20111208
  Receipt Date: 20111128
  Transmission Date: 20120403
  Serious: Yes (Hospitalization)
  Sender: FDA-Public Use
  Company Number: US-ELI_LILLY_AND_COMPANY-US201106002017

PATIENT
  Sex: Female

DRUGS (32)
  1. FORTEO [Suspect]
     Indication: OSTEOPOROSIS
     Dosage: 20 UG, QD
     Dates: start: 20110401
  2. FORTEO [Suspect]
     Dosage: 20 UG, QD
  3. IMDUR [Concomitant]
  4. HYDROXYZINE [Concomitant]
     Dosage: UNK, PRN
  5. VITAMIN D [Concomitant]
     Dosage: 50000 IU, WEEKLY (1/W)
  6. COREG [Concomitant]
  7. ISOBIDE [Concomitant]
     Dosage: UNK
  8. CYANOCOBALAMIN [Concomitant]
  9. MULTI-VITAMIN [Concomitant]
  10. FORTEO [Suspect]
     Dosage: 20 UG, QD
     Route: 065
  11. NOVOLOG [Concomitant]
     Dosage: 10 IU, TID
  12. SYNTHROID [Concomitant]
     Dosage: 0.5 UNK, UNK
  13. INSULIN [Concomitant]
  14. FORTEO [Suspect]
     Dosage: 20 UG, QD
  15. FORTEO [Suspect]
     Dosage: 20 UG, QD
     Route: 065
  16. LEVEMIR [Concomitant]
     Dosage: 45 IU, EACH EVENING
  17. PEPCID [Concomitant]
  18. AMLODIPINE [Concomitant]
  19. LASIX [Concomitant]
     Dosage: UNK UNK, PRN
  20. PHENERGAN [Concomitant]
     Dosage: UNK UNK, PRN
  21. PLAVIX [Concomitant]
     Dosage: 75 MG, UNK
  22. BENAZEPRIL HYDROCHLORIDE [Concomitant]
     Dosage: UNK
  23. NORVASC [Concomitant]
  24. VICTOZA [Concomitant]
  25. LOTENSIN [Concomitant]
  26. ATARAX [Concomitant]
     Dosage: UNK UNK, PRN
  27. CALCIUM CARBONATE [Concomitant]
     Indication: MINERAL SUPPLEMENTATION
     Dosage: 750 MG, QD
  28. FORTEO [Suspect]
     Dosage: 20 UG, QD
  29. ASPIRIN [Concomitant]
     Dosage: 81 MG, UNK
  30. POTASSIUM ACETATE [Concomitant]
     Dosage: UNK UNK, PRN
  31. FAMOTIDINE [Concomitant]
     Dosage: UNK
  32. PROMETHAZINE [Concomitant]
     Indication: NAUSEA
     Dosage: UNK, PRN

REACTIONS (9)
  - PAIN IN EXTREMITY [None]
  - BLOOD GLUCOSE INCREASED [None]
  - BLOOD PRESSURE INCREASED [None]
  - ASTHENIA [None]
  - MALAISE [None]
  - GASTROINTESTINAL DISORDER [None]
  - RECTAL HAEMORRHAGE [None]
  - HEART RATE DECREASED [None]
  - VISION BLURRED [None]
